FAERS Safety Report 9153281 (Version 1)
Quarter: 2013Q1

REPORT INFORMATION
  Report Type: Spontaneous
  Country: IN (occurrence: None)
  Receive Date: 20130201
  Receipt Date: 20130201
  Transmission Date: 20140127
  Serious: Yes (Other)
  Sender: FDA-Public Use
  Company Number: 2013P1001257

PATIENT
  Age: 55 Year
  Sex: Female

DRUGS (6)
  1. ISONIAZID [Suspect]
     Indication: PULMONARY TUBERCULOSIS
  2. RIFAMPICIN [Concomitant]
  3. PYRAZINAMIDE [Concomitant]
  4. ETHAMBUTOL [Concomitant]
  5. ANTIPYRETICS, ANALGESICS ANTIPYRETICS, ANALGESICS AGENTS [Concomitant]
  6. PARACETAMOL [Concomitant]

REACTIONS (6)
  - Tachycardia [None]
  - Breath sounds abnormal [None]
  - Toxic epidermal necrolysis [None]
  - Anaemia [None]
  - Pleural effusion [None]
  - Stevens-Johnson syndrome [None]
